FAERS Safety Report 4479670-8 (Version None)
Quarter: 2004Q4

REPORT INFORMATION
  Report Type: 
  Country: None (occurrence: None)
  Receive Date: 20041020
  Receipt Date: 20040209
  Transmission Date: 20050328
  Serious: Yes (Other)
  Sender: FDA-Public Use
  Company Number: US-GLAXOSMITHKLINE-A0497227A

PATIENT
  Age: 56 Year
  Sex: Female

DRUGS (3)
  1. IMITREX [Suspect]
     Indication: MIGRAINE
     Route: 048
     Dates: end: 20040506
  2. CALCIUM [Concomitant]
     Indication: DRUG USE FOR UNKNOWN INDICATION
  3. ASPIRIN [Concomitant]
     Indication: DRUG USE FOR UNKNOWN INDICATION

REACTIONS (8)
  - ARTHRALGIA [None]
  - BACK PAIN [None]
  - DRUG INEFFECTIVE [None]
  - HEADACHE [None]
  - MUSCLE CRAMP [None]
  - MUSCLE SPASMS [None]
  - OVERDOSE [None]
  - PAIN IN EXTREMITY [None]
